FAERS Safety Report 4535654-2 (Version None)
Quarter: 2004Q4

REPORT INFORMATION
  Report Type: 
  Country: None (occurrence: None)
  Receive Date: 20041222
  Receipt Date: 20041222
  Transmission Date: 20050328
  Serious: Yes (Other)
  Sender: FDA-Public Use
  Company Number: None

PATIENT
  Age: 70 Year
  Sex: Male
  Weight: 83.9154 kg

DRUGS (7)
  1. ENBREL [Suspect]
     Indication: RHEUMATOID ARTHRITIS
     Dosage: INJ 2X WEEKS 25
     Dates: start: 20001020, end: 20041213
  2. PREDNISONE [Suspect]
     Indication: RHEUMATOID ARTHRITIS
     Dosage: 5 MG
     Dates: start: 19950801
  3. ATENOLOL [Concomitant]
  4. COZAAR [Concomitant]
  5. INSPRA [Concomitant]
  6. ALPHAGAN [Concomitant]
  7. GLAUCOMA [Concomitant]

REACTIONS (7)
  - CLUBBING [None]
  - CONDITION AGGRAVATED [None]
  - ONYCHOMYCOSIS [None]
  - RASH PAPULAR [None]
  - ROSACEA [None]
  - SCAB [None]
  - SEBACEOUS GLAND DISORDER [None]
